FAERS Safety Report 10519012 (Version 3)
Quarter: 2014Q4

REPORT INFORMATION
  Report Type: Report from Study
  Country: GR (occurrence: GR)
  Receive Date: 20141015
  Receipt Date: 20141017
  Transmission Date: 20150528
  Serious: Yes (Death, Hospitalization)
  Sender: FDA-Public Use
  Company Number: GR-009507513-1409GRC008064

PATIENT
  Age: 59 Year
  Sex: Female
  Weight: 50 kg

DRUGS (2)
  1. PEMBROLIZUMAB. [Suspect]
     Active Substance: PEMBROLIZUMAB
     Dosage: 2 MG/KG, Q3W
     Route: 042
     Dates: start: 20140923, end: 20140923
  2. PEMBROLIZUMAB. [Suspect]
     Active Substance: PEMBROLIZUMAB
     Indication: NON-SMALL CELL LUNG CANCER
     Dosage: 2 MG/KG, Q3W
     Route: 042
     Dates: start: 20140902, end: 20140902

REACTIONS (2)
  - Respiratory tract infection [Fatal]
  - Pain [Recovered/Resolved]

NARRATIVE: CASE EVENT DATE: 20140908
